FAERS Safety Report 18694610 (Version 1)
Quarter: 2020Q4

REPORT INFORMATION
  Report Type: Spontaneous
  Country: US (occurrence: US)
  Receive Date: 20201231
  Receipt Date: 20201231
  Transmission Date: 20210114
  Serious: No
  Sender: FDA-Public Use
  Company Number: None

PATIENT
  Sex: Female

DRUGS (2)
  1. HEALTHBEACON [Suspect]
     Active Substance: DEVICE
  2. HUMIRA [Suspect]
     Active Substance: ADALIMUMAB
     Indication: RHEUMATOID ARTHRITIS
     Route: 030
     Dates: start: 20201231

REACTIONS (2)
  - Immune system disorder [None]
  - Therapy interrupted [None]

NARRATIVE: CASE EVENT DATE: 20201231
